FAERS Safety Report 15594742 (Version 1)
Quarter: 2018Q4

REPORT INFORMATION
  Report Type: Spontaneous
  Country: US (occurrence: US)
  Receive Date: 20181106
  Receipt Date: 20181106
  Transmission Date: 20190205
  Serious: No
  Sender: FDA-Public Use
  Company Number: US-SA-2018SA302597

PATIENT
  Sex: Female

DRUGS (9)
  1. AMPHETAMINE [Concomitant]
     Active Substance: AMPHETAMINE
  2. BRINTELLIX [Concomitant]
     Active Substance: VORTIOXETINE HYDROBROMIDE
  3. LYRICA [Concomitant]
     Active Substance: PREGABALIN
  4. DIAZEPAM. [Concomitant]
     Active Substance: DIAZEPAM
  5. EFFEXOR [Concomitant]
     Active Substance: VENLAFAXINE HYDROCHLORIDE
  6. ATORVASTATIN [Concomitant]
     Active Substance: ATORVASTATIN
  7. METOPROLOL. [Concomitant]
     Active Substance: METOPROLOL
  8. AUBAGIO [Suspect]
     Active Substance: TERIFLUNOMIDE
     Dosage: 14 MG
     Route: 048
  9. CEPHALEXINE [Concomitant]
     Active Substance: CEPHALEXIN

REACTIONS (1)
  - Skin exfoliation [Unknown]
